FAERS Safety Report 6531562-6 (Version None)
Quarter: 2010Q1

REPORT INFORMATION
  Report Type: 
  Country: None (occurrence: None)
  Receive Date: 20100108
  Receipt Date: 20100105
  Transmission Date: 20100710
  Serious: Yes (Death)
  Sender: FDA-Public Use
  Company Number: US-ASTRAZENECA-2010SE00661

PATIENT
  Age: 52 Year
  Sex: Male

DRUGS (3)
  1. ATENOLOL [Suspect]
     Route: 048
  2. AMLODIPINE [Suspect]
     Route: 048
  3. CHARCOAL [Suspect]
     Route: 048

REACTIONS (2)
  - COMPLETED SUICIDE [None]
  - DRUG TOXICITY [None]
